FAERS Safety Report 8225613-0 (Version None)
Quarter: 2012Q1

REPORT INFORMATION
  Report Type: 
  Country: None (occurrence: None)
  Receive Date: 20120321
  Receipt Date: 20120316
  Transmission Date: 20120608
  Serious: Yes (Death)
  Sender: FDA-Public Use
  Company Number: US-JNJFOC-20120308583

PATIENT
  Age: 83 Year
  Sex: Female

DRUGS (1)
  1. LUBRIDERM DAILY MOISTURE WITH SPF 15 [Suspect]
     Indication: PROPHYLAXIS
     Dosage: DAILY USE
     Route: 061

REACTIONS (1)
  - RENAL FAILURE [None]
